FAERS Safety Report 9057372 (Version 1)
Quarter: 2013Q1

REPORT INFORMATION
  Report Type: Spontaneous
  Country: IT (occurrence: IT)
  Receive Date: 20130204
  Receipt Date: 20130204
  Transmission Date: 20140127
  Serious: Yes (Hospitalization)
  Sender: FDA-Public Use
  Company Number: PHHY2013IT009311

PATIENT
  Age: 78 Year
  Sex: Female

DRUGS (2)
  1. KETOPROFEN [Suspect]
     Indication: BACK PAIN
     Dates: start: 20121204, end: 20121206
  2. DEXAMETHASONE [Concomitant]

REACTIONS (4)
  - Renal failure [Recovered/Resolved]
  - Anaemia [Recovered/Resolved]
  - Anuria [Recovered/Resolved]
  - Hyperuricaemia [Recovered/Resolved]
